FAERS Safety Report 7896606-8 (Version None)
Quarter: 2011Q4

REPORT INFORMATION
  Report Type: 
  Country: None (occurrence: None)
  Receive Date: 20111107
  Receipt Date: 20111028
  Transmission Date: 20120403
  Serious: Yes (Other)
  Sender: FDA-Public Use
  Company Number: US-BIOGENIDEC-2011BI041560

PATIENT
  Age: 44 Year
  Sex: Male

DRUGS (2)
  1. TYSABRI [Suspect]
     Indication: MULTIPLE SCLEROSIS
     Route: 042
     Dates: start: 20080701
  2. BACLOFEN [Concomitant]
     Route: 037

REACTIONS (7)
  - MENINGITIS [None]
  - PYREXIA [None]
  - PERIPHERAL COLDNESS [None]
  - STATUS EPILEPTICUS [None]
  - RESPIRATORY FAILURE [None]
  - PAIN IN EXTREMITY [None]
  - ARTHRALGIA [None]
